FAERS Safety Report 25877350 (Version 1)
Quarter: 2025Q4

REPORT INFORMATION
  Report Type: Spontaneous
  Country: BR (occurrence: BR)
  Receive Date: 20251003
  Receipt Date: 20251003
  Transmission Date: 20260118
  Serious: Yes (Death)
  Sender: DR REDDYS
  Company Number: BR-RDY-BRA/2025/09/014867

PATIENT
  Age: 90 Year
  Sex: Male

DRUGS (1)
  1. ABIRATERONE ACETATE [Suspect]
     Active Substance: ABIRATERONE ACETATE
     Indication: Prostate cancer
     Dosage: MANUFACTURED: 24-DEC-2023
     Route: 065
     Dates: start: 201909

REACTIONS (1)
  - Disease complication [Fatal]

NARRATIVE: CASE EVENT DATE: 20250912
